FAERS Safety Report 12326306 (Version 1)
Quarter: 2016Q2

REPORT INFORMATION
  Report Type: Spontaneous
  Country: US (occurrence: US)
  Receive Date: 20160503
  Receipt Date: 20160503
  Transmission Date: 20160815
  Serious: No
  Sender: FDA-Public Use
  Company Number: US-BAYER-2016-075360

PATIENT
  Sex: Male

DRUGS (1)
  1. MIRALAX [Suspect]
     Active Substance: POLYETHYLENE GLYCOL 3350
     Indication: CONSTIPATION
     Dosage: 1 DF, UNK
     Route: 048
     Dates: start: 2008

REACTIONS (6)
  - Gastrointestinal motility disorder [None]
  - Absent bowel movement [None]
  - Abnormal faeces [None]
  - Faeces soft [None]
  - Faeces hard [None]
  - Feeling abnormal [None]
